FAERS Safety Report 22215528 (Version 1)
Quarter: 2023Q2

REPORT INFORMATION
  Report Type: Spontaneous
  Country: US (occurrence: US)
  Receive Date: 20230416
  Receipt Date: 20230416
  Transmission Date: 20230721
  Serious: No
  Sender: FDA-Public Use
  Company Number: US-JNJFOC-20190706488

PATIENT
  Sex: Male

DRUGS (1)
  1. IMODIUM MULTI-SYMPTOM RELIEF [Suspect]
     Active Substance: DIMETHICONE\LOPERAMIDE HYDROCHLORIDE
     Indication: Diarrhoea
     Dosage: 2 CAPLETS, THEN 1 CAPLET AFTER DIARRHEA, EVERYDAY 2X PER DAY
     Route: 048
     Dates: start: 20190517, end: 20190702

REACTIONS (1)
  - Weight decreased [Not Recovered/Not Resolved]
